FAERS Safety Report 9620272 (Version 2)
Quarter: 2013Q4

REPORT INFORMATION
  Report Type: Spontaneous
  Country: US (occurrence: US)
  Receive Date: 20131014
  Receipt Date: 20131014
  Transmission Date: 20140711
  Serious: No
  Sender: FDA-Public Use
  Company Number: US-ALLERGAN-1306978US

PATIENT
  Age: 79 Year
  Sex: Female

DRUGS (3)
  1. ALPHAGAN P [Suspect]
     Indication: GLAUCOMA
     Dosage: 2 GTT, BID
     Route: 047
     Dates: start: 20130510, end: 20130511
  2. METOPROLOL [Concomitant]
     Indication: HYPERTENSION
     Dosage: 1 N/A, QD
     Route: 048
  3. OXYGEN [Concomitant]
     Indication: CARDIAC DISORDER
     Dosage: 9 HOURS, DAILY

REACTIONS (7)
  - Depression [Recovered/Resolved]
  - Chest discomfort [Recovered/Resolved]
  - Feeling abnormal [Recovered/Resolved]
  - Irritability [Recovered/Resolved]
  - Fatigue [Recovered/Resolved]
  - Activities of daily living impaired [Recovered/Resolved]
  - Inappropriate schedule of drug administration [Unknown]
